FAERS Safety Report 5915506-3 (Version None)
Quarter: 2008Q4

REPORT INFORMATION
  Report Type: 
  Country: None (occurrence: None)
  Receive Date: 20081010
  Receipt Date: 20080929
  Transmission Date: 20090506
  Serious: Yes (Other)
  Sender: FDA-Public Use
  Company Number: US-PFIZER INC-2008071460

PATIENT
  Sex: Female

DRUGS (10)
  1. LYRICA [Suspect]
     Indication: BURNING MOUTH SYNDROME
     Dates: start: 20060621
  2. LYRICA [Suspect]
     Indication: GLOSSODYNIA
  3. GEODON [Suspect]
  4. ABILIFY [Suspect]
  5. EVOXAC [Concomitant]
  6. LEXAPRO [Concomitant]
  7. DEXTROSTAT [Concomitant]
  8. ADVAIR DISKUS 100/50 [Concomitant]
  9. ATIVAN [Concomitant]
  10. ZOLPIDEM [Concomitant]

REACTIONS (8)
  - BURNING MOUTH SYNDROME [None]
  - DRY MOUTH [None]
  - FALL [None]
  - GLOSSITIS [None]
  - HYPERKERATOSIS [None]
  - PARAKERATOSIS [None]
  - TARDIVE DYSKINESIA [None]
  - ULCER [None]
